FAERS Safety Report 20876650 (Version 1)
Quarter: 2022Q2

REPORT INFORMATION
  Report Type: Other
  Country: US (occurrence: None)
  Receive Date: 20220526
  Receipt Date: 20220526
  Transmission Date: 20220721
  Serious: Yes (Hospitalization)
  Sender: FDA-Public Use
  Company Number: US-ROCHE-3098612

PATIENT
  Sex: Female

DRUGS (4)
  1. PULMOZYME [Suspect]
     Active Substance: DORNASE ALFA
     Indication: Neuromyopathy
     Route: 065
  2. PULMOZYME [Suspect]
     Active Substance: DORNASE ALFA
     Indication: Breath holding
  3. EVRYSDI [Suspect]
     Active Substance: RISDIPLAM
     Indication: Neuromyopathy
     Dosage: TAKE 5.7ML BY MOUTH EVERY DAY
     Route: 065
  4. EVRYSDI [Suspect]
     Active Substance: RISDIPLAM
     Indication: Breath holding

REACTIONS (2)
  - Nasopharyngitis [Unknown]
  - Lung disorder [Unknown]
